FAERS Safety Report 10349752 (Version 3)
Quarter: 2015Q1

REPORT INFORMATION
  Report Type: Spontaneous
  Country: FR (occurrence: FR)
  Receive Date: 20140730
  Receipt Date: 20150130
  Transmission Date: 20150720
  Serious: Yes (Other)
  Sender: FDA-Public Use
  Company Number: FR-ROCHE-1441641

PATIENT
  Age: 84 Year
  Sex: Male

DRUGS (32)
  1. MANIDIPINE [Concomitant]
     Active Substance: MANIDIPINE
  2. PHOCYTAN [Concomitant]
     Active Substance: .ALPHA.-GLUCOSE-1-PHOSPHATE
     Route: 065
     Dates: start: 20140615, end: 20140622
  3. TARDYFERON (FRANCE) [Concomitant]
     Route: 065
     Dates: start: 20140706
  4. VALIUM [Suspect]
     Active Substance: DIAZEPAM
     Indication: PRODUCT USED FOR UNKNOWN INDICATION
     Route: 065
     Dates: start: 20140618
  5. PARACETAMOL [Suspect]
     Active Substance: ACETAMINOPHEN
     Indication: PRODUCT USED FOR UNKNOWN INDICATION
     Dosage: PANPHARMA
     Route: 065
     Dates: start: 20140615, end: 20140714
  6. KARDEGIC [Suspect]
     Active Substance: ASPIRIN LYSINE
     Indication: PRODUCT USED FOR UNKNOWN INDICATION
     Route: 048
     Dates: start: 20140629
  7. ATARAX [Suspect]
     Active Substance: HYDROXYZINE\HYDROXYZINE HYDROCHLORIDE
     Indication: PRODUCT USED FOR UNKNOWN INDICATION
     Route: 048
     Dates: start: 20140619
  8. ZOPHREN [Suspect]
     Active Substance: ONDANSETRON
     Indication: PRODUCT USED FOR UNKNOWN INDICATION
     Route: 065
     Dates: end: 20140714
  9. ADROVANCE [Concomitant]
     Active Substance: ALENDRONATE SODIUM\CHOLECALCIFEROL
     Dosage: THERAPY STOPPED BETWEEN 15/JUN/2014 TO 17/JUN/2014
     Route: 065
  10. AUGMENTIN [Concomitant]
     Active Substance: AMOXICILLIN\CLAVULANATE POTASSIUM
     Route: 065
     Dates: start: 20140626, end: 20140628
  11. ALVITYL [Concomitant]
     Route: 065
     Dates: start: 20140629
  12. CALCIPARINE [Suspect]
     Active Substance: HEPARIN CALCIUM
     Indication: PRODUCT USED FOR UNKNOWN INDICATION
     Route: 058
     Dates: start: 20140618
  13. FUROSEMIDE. [Concomitant]
     Active Substance: FUROSEMIDE
  14. KAYEXALATE [Concomitant]
     Active Substance: SODIUM POLYSTYRENE SULFONATE
     Dosage: THERAPY STOPPED BETWEEN 15/JUN/2014 TO 17/JUN/2014
     Route: 065
  15. UNFRACTIONATED HEPARIN [Concomitant]
     Active Substance: HEPARIN SODIUM
     Route: 065
     Dates: start: 20140615, end: 20140618
  16. ULTRALEVURE [Concomitant]
     Active Substance: SACCHAROMYCES CEREVISIAE
     Route: 065
     Dates: start: 20140702
  17. DIFFU K [Concomitant]
     Active Substance: POTASSIUM CHLORIDE
     Route: 065
     Dates: start: 20140708
  18. COUMADINE [Concomitant]
     Active Substance: WARFARIN SODIUM
     Dosage: THERAPY STOPPED BETWEEN 15/JUN/2014 TO 17/JUN/2014
     Route: 065
  19. ORBENINE [Concomitant]
     Active Substance: CLOXACILLIN SODIUM
     Route: 065
     Dates: start: 20140702
  20. VITAMIN K [Concomitant]
     Active Substance: PHYTONADIONE
     Route: 065
  21. TIORFAN [Suspect]
     Active Substance: RACECADOTRIL
     Indication: PRODUCT USED FOR UNKNOWN INDICATION
     Route: 048
     Dates: start: 20140702, end: 20140707
  22. TIORFAN [Concomitant]
     Active Substance: RACECADOTRIL
     Route: 065
     Dates: start: 20140702, end: 20140707
  23. ORBENINE [Suspect]
     Active Substance: CLOXACILLIN SODIUM
     Indication: PRODUCT USED FOR UNKNOWN INDICATION
     Route: 065
     Dates: start: 20140702
  24. EUPANTOL [Suspect]
     Active Substance: PANTOPRAZOLE SODIUM
     Indication: PRODUCT USED FOR UNKNOWN INDICATION
     Route: 048
     Dates: start: 20140615
  25. HALDOL [Suspect]
     Active Substance: HALOPERIDOL
     Indication: PRODUCT USED FOR UNKNOWN INDICATION
     Route: 065
     Dates: start: 20140620
  26. LOXEN (FRANCE) [Concomitant]
     Active Substance: NICARDIPINE HYDROCHLORIDE
     Route: 065
     Dates: start: 20140615, end: 20140617
  27. DECAN (FRANCE) [Concomitant]
     Active Substance: MINERALS
     Route: 065
     Dates: start: 20140615, end: 20140622
  28. VANCOMYCINE [Concomitant]
     Active Substance: VANCOMYCIN
     Dosage: SANDOZ
     Route: 065
     Dates: start: 20140629, end: 20140703
  29. MORPHINE [Concomitant]
     Active Substance: MORPHINE
     Route: 065
     Dates: start: 20140706, end: 20140707
  30. TAZOCILLINE [Concomitant]
     Active Substance: PIPERACILLIN SODIUM\TAZOBACTAM SODIUM
     Dosage: KABI
     Route: 065
     Dates: start: 20140629, end: 20140703
  31. AMIKLIN [Concomitant]
     Active Substance: AMIKACIN SULFATE
     Dosage: MYLAN
     Route: 065
     Dates: start: 20140629, end: 20140703
  32. AERIUS (FRANCE) [Concomitant]
     Route: 065
     Dates: start: 20140706

REACTIONS (1)
  - Purpura [Recovered/Resolved]

NARRATIVE: CASE EVENT DATE: 20140709
